FAERS Safety Report 7888543-X (Version None)
Quarter: 2011Q4

REPORT INFORMATION
  Report Type: 
  Country: None (occurrence: None)
  Receive Date: 20111103
  Receipt Date: 20111028
  Transmission Date: 20120403
  Serious: Yes (Hospitalization)
  Sender: FDA-Public Use
  Company Number: US-SANOFI-AVENTIS-2011SA071074

PATIENT
  Age: 32 Year
  Sex: Female

DRUGS (2)
  1. LANTUS [Suspect]
     Dosage: DOSE:20 UNIT(S)
     Route: 058
     Dates: start: 20020101
  2. SOLOSTAR [Suspect]
     Dates: start: 20020101

REACTIONS (2)
  - ECTOPIC PREGNANCY [None]
  - MATERNAL EXPOSURE DURING PREGNANCY [None]
